FAERS Safety Report 23433303 (Version 1)
Quarter: 2024Q1

REPORT INFORMATION
  Report Type: Spontaneous
  Country: US (occurrence: US)
  Receive Date: 20240123
  Receipt Date: 20240123
  Transmission Date: 20240410
  Serious: No
  Sender: FDA-Public Use
  Company Number: US-PFIZER INC-202400020334

PATIENT
  Age: 52 Year
  Sex: Female

DRUGS (5)
  1. XELJANZ XR [Suspect]
     Active Substance: TOFACITINIB CITRATE
     Dosage: 11 MG, 1X/DAY
     Route: 048
     Dates: start: 202212
  2. FOLIC ACID [Concomitant]
     Active Substance: FOLIC ACID
  3. IBUPROFEN [Concomitant]
     Active Substance: IBUPROFEN
  4. METHOTREXATE [Concomitant]
     Active Substance: METHOTREXATE
  5. IRON [Concomitant]
     Active Substance: IRON

REACTIONS (2)
  - Fatigue [Unknown]
  - Abdominal discomfort [Unknown]
